FAERS Safety Report 20263932 (Version 2)
Quarter: 2022Q1

REPORT INFORMATION
  Report Type: Spontaneous
  Country: US (occurrence: US)
  Receive Date: 20211231
  Receipt Date: 20220128
  Transmission Date: 20220423
  Serious: No
  Sender: FDA-Public Use
  Company Number: US-GSKCCFUS-Case-01254194_AE-73427

PATIENT
  Sex: Female

DRUGS (1)
  1. BREO ELLIPTA [Suspect]
     Active Substance: FLUTICASONE FUROATE\VILANTEROL TRIFENATATE
     Indication: Product used for unknown indication
     Dosage: UNK UNK, QD, 100/25 MCG
     Route: 055

REACTIONS (6)
  - Wrong technique in device usage process [Unknown]
  - Drug ineffective [Unknown]
  - Extra dose administered [Unknown]
  - Underdose [Unknown]
  - Product use issue [Unknown]
  - Product complaint [Unknown]
